FAERS Safety Report 25795208 (Version 2)
Quarter: 2025Q4

REPORT INFORMATION
  Report Type: Report from Study
  Country: AR (occurrence: AR)
  Receive Date: 20250912
  Receipt Date: 20251020
  Transmission Date: 20260117
  Serious: Yes (Hospitalization, Other)
  Sender: EMD SERONO INC
  Company Number: AR-Merck Healthcare KGaA-2025045835

PATIENT
  Age: 41 Year
  Sex: Female

DRUGS (3)
  1. REBIF [Suspect]
     Active Substance: INTERFERON BETA-1A
     Indication: Multiple sclerosis
     Dates: start: 20241129, end: 202507
  2. REBIF [Suspect]
     Active Substance: INTERFERON BETA-1A
     Dates: start: 20250905
  3. TOPIRAMATE [Suspect]
     Active Substance: TOPIRAMATE
     Indication: Product used for unknown indication

REACTIONS (6)
  - Constipation [Recovered/Resolved]
  - Cholelithiasis [Unknown]
  - General physical health deterioration [Unknown]
  - Chronic gastritis [Unknown]
  - Tuberculin test positive [Unknown]
  - Genital infection [Unknown]

NARRATIVE: CASE EVENT DATE: 20250101
